FAERS Safety Report 8924966 (Version 1)
Quarter: 2012Q4

REPORT INFORMATION
  Report Type: 
  Country: US (occurrence: US)
  Receive Date: 20121126
  Receipt Date: 20121126
  Transmission Date: 20130627
  Serious: No
  Sender: FDA-Public Use
  Company Number: US-ELI_LILLY_AND_COMPANY-US201211005412

PATIENT
  Age: 62 Year
  Sex: Male

DRUGS (2)
  1. CIALIS [Suspect]
     Indication: ERECTILE DYSFUNCTION
     Dosage: 20 mg, prn
  2. CIALIS [Suspect]
     Dosage: 1 DF, prn

REACTIONS (2)
  - Eye haemorrhage [Unknown]
  - Wrong technique in drug usage process [Unknown]
